FAERS Safety Report 18199012 (Version 5)
Quarter: 2020Q3

REPORT INFORMATION
  Report Type: Report from Study
  Country: US (occurrence: US)
  Receive Date: 20200826
  Receipt Date: 20200904
  Transmission Date: 20201103
  Serious: Yes (Hospitalization)
  Sender: FDA-Public Use
  Company Number: US-EISAI MEDICAL RESEARCH-EC-2020-079485

PATIENT
  Age: 76 Year
  Sex: Male
  Weight: 149.1 kg

DRUGS (22)
  1. PLACEBO [Suspect]
     Active Substance: UNSPECIFIED INGREDIENT
     Indication: HEPATOCELLULAR CARCINOMA
     Route: 041
     Dates: start: 20200130, end: 20200717
  2. MINOXIDIL. [Concomitant]
     Active Substance: MINOXIDIL
     Dates: start: 20200305
  3. POTASSIUM CHLORIDE. [Concomitant]
     Active Substance: POTASSIUM CHLORIDE
     Dates: start: 199709
  4. COZAAR [Concomitant]
     Active Substance: LOSARTAN POTASSIUM
     Dates: start: 199709
  5. MINOXIDIL. [Concomitant]
     Active Substance: MINOXIDIL
     Dates: start: 199709
  6. ADVIL [Concomitant]
     Active Substance: IBUPROFEN
     Dates: start: 200509
  7. HYDROCHLOROTHIAZIDE. [Concomitant]
     Active Substance: HYDROCHLOROTHIAZIDE
     Dates: start: 199709
  8. NORVASC [Concomitant]
     Active Substance: AMLODIPINE BESYLATE
     Dates: start: 20200206
  9. LEVOTHYROXINE SODIUM. [Concomitant]
     Active Substance: LEVOTHYROXINE SODIUM
     Dates: start: 20200511
  10. CLONIDINE. [Concomitant]
     Active Substance: CLONIDINE
     Dates: start: 20200717
  11. LENVATINIB [Suspect]
     Active Substance: LENVATINIB
     Indication: HEPATOCELLULAR CARCINOMA
     Dosage: STARTING DOSE AT 12 MG, FLUCTUATED DOSAGE
     Route: 048
     Dates: start: 20200130, end: 20200806
  12. PREDNISONE. [Suspect]
     Active Substance: PREDNISONE
     Indication: AUTOIMMUNE PERICARDITIS
     Route: 065
  13. MIRALAX [Concomitant]
     Active Substance: POLYETHYLENE GLYCOL 3350
     Dates: start: 201901
  14. MELATONIN [Concomitant]
     Active Substance: MELATONIN
     Dates: start: 20200701
  15. LENVATINIB [Suspect]
     Active Substance: LENVATINIB
     Route: 048
     Dates: start: 20200807
  16. DESITIN MAXIMUM STRENGTH [Concomitant]
     Dates: start: 20200301
  17. PLACEBO [Suspect]
     Active Substance: UNSPECIFIED INGREDIENT
     Route: 041
     Dates: start: 20200807, end: 20200807
  18. TORSEMIDE. [Concomitant]
     Active Substance: TORSEMIDE
     Dates: start: 199709
  19. TORSEMIDE. [Concomitant]
     Active Substance: TORSEMIDE
     Dates: start: 20200421
  20. EMLA [Concomitant]
     Active Substance: LIDOCAINE\PRILOCAINE
     Dates: start: 20200311
  21. CIPROFLOXACIN HYDROCHLORIDE. [Concomitant]
     Active Substance: CIPROFLOXACIN HYDROCHLORIDE
     Dates: start: 20200626
  22. KETOCONAZOLE. [Concomitant]
     Active Substance: KETOCONAZOLE
     Dates: start: 20200518

REACTIONS (2)
  - Autoimmune pericarditis [Not Recovered/Not Resolved]
  - Hypertension [Not Recovered/Not Resolved]

NARRATIVE: CASE EVENT DATE: 20200814
